FAERS Safety Report 7459507-5 (Version None)
Quarter: 2011Q2

REPORT INFORMATION
  Report Type: 
  Country: None (occurrence: None)
  Receive Date: 20110505
  Receipt Date: 20110421
  Transmission Date: 20111010
  Serious: No
  Sender: FDA-Public Use
  Company Number: FR-JNJFOC-20110104733

PATIENT
  Age: 82 Year
  Sex: Female

DRUGS (7)
  1. LEVOFLOXACIN [Suspect]
     Indication: BRONCHITIS
     Route: 048
  2. LEVOFLOXACIN [Suspect]
     Indication: SINUSITIS
     Route: 048
  3. LASIX [Concomitant]
     Indication: CARDIAC FAILURE
     Route: 065
  4. BIPRETERAX [Concomitant]
     Indication: CARDIAC FAILURE
     Route: 065
  5. FOSAMAX [Concomitant]
     Indication: OSTEOPOROSIS
     Route: 065
  6. LASIX [Concomitant]
     Route: 065
  7. ALDACTAZINE [Concomitant]
     Indication: CARDIAC FAILURE
     Route: 065

REACTIONS (4)
  - OEDEMA PERIPHERAL [None]
  - TREMOR [None]
  - ASTHENIA [None]
  - MUSCLE SPASMS [None]
